FAERS Safety Report 8825936 (Version 1)
Quarter: 2012Q4

REPORT INFORMATION
  Report Type: 
  Country: US (occurrence: US)
  Receive Date: 20121005
  Receipt Date: 20121005
  Transmission Date: 20130627
  Serious: No
  Sender: FDA-Public Use
  Company Number: US-ELI_LILLY_AND_COMPANY-US201209007751

PATIENT
  Age: 45 Year
  Sex: Female

DRUGS (3)
  1. CYMBALTA [Suspect]
     Dosage: 90 mg, unknown
     Dates: start: 201209
  2. CYMBALTA [Suspect]
     Dosage: 90 mg, unknown
  3. OTHER LIPID MODIFYING AGENTS [Concomitant]

REACTIONS (1)
  - Hepatic enzyme increased [Recovered/Resolved]
